FAERS Safety Report 6449354-5 (Version None)
Quarter: 2009Q4

REPORT INFORMATION
  Report Type: 
  Country: None (occurrence: None)
  Receive Date: 20091120
  Receipt Date: 20091109
  Transmission Date: 20100525
  Serious: Yes (Life-Threatening, Other)
  Sender: FDA-Public Use
  Company Number: IN-TYCO HEALTHCARE/MALLINCKRODT-T200902095

PATIENT
  Age: 25 Year
  Sex: Female
  Weight: 44 kg

DRUGS (12)
  1. MORPHINE [Suspect]
     Indication: PREMEDICATION
     Dosage: 4.5 MG, INJECTION
  2. PROMETHAZINE [Suspect]
     Indication: PREMEDICATION
     Dosage: 25 MG, INJECTION
  3. DIGOXIN [Suspect]
     Indication: PREMEDICATION
     Dosage: 0.25 MG, SINGLE
  4. RINGER LACTATE                     /01126301/ [Suspect]
     Route: 042
  5. FENTANYL-100 [Suspect]
     Indication: INDUCTION OF ANAESTHESIA
     Dosage: 250 UG, UNK
  6. THIOPENTONE                        /00053401/ [Suspect]
     Indication: INDUCTION OF ANAESTHESIA
     Dosage: 100 MG, UNK
  7. ROCURONIUM BROMIDE [Suspect]
     Indication: INDUCTION OF ANAESTHESIA
     Dosage: 40 MG, UNK
  8. ENALAPRIL MALEATE [Suspect]
     Dosage: 2.5 MG, BID
  9. DIGOXIN [Concomitant]
     Dosage: 0.25 MG, QD (5/7)
  10. FUROSEMIDE [Concomitant]
     Dosage: 40 MG, QD
  11. POTASSIUM CHLORIDE [Concomitant]
     Dosage: 600 MG, QD
  12. SORBITRATE [Concomitant]
     Dosage: 5 MG, SOS
     Route: 060

REACTIONS (3)
  - CARDIAC ARREST [None]
  - RENAL FAILURE ACUTE [None]
  - RENAL FAILURE CHRONIC [None]
